FAERS Safety Report 5888359-X (Version None)
Quarter: 2008Q3

REPORT INFORMATION
  Report Type: 
  Country: None (occurrence: None)
  Receive Date: 20080916
  Receipt Date: 20080905
  Transmission Date: 20090109
  Serious: Yes (Hospitalization)
  Sender: FDA-Public Use
  Company Number: GXKR2008GB08536

PATIENT
  Age: 79 Year
  Sex: Female

DRUGS (10)
  1. CO-DYDRAMOL (NGX) (DIHYDROCODEINE, PARACETAMOL) [Suspect]
  2. ACETYLSALICYLIC CAID (ACETYLSALICYLIC ACID) [Concomitant]
  3. CALCICHEW (CALCIUM CARBONATE) [Concomitant]
  4. CETIRIZINE HCL [Concomitant]
  5. INDAPAMIDE [Concomitant]
  6. NIFEDIPINE [Concomitant]
  7. ACETAMINOPHEN [Concomitant]
  8. QUININE (QUININE) [Concomitant]
  9. RAMIPRIL [Concomitant]
  10. RISEDRONIC ACID (RISEDRONIC ACID) [Concomitant]

REACTIONS (1)
  - ANAPHYLACTIC REACTION [None]
